FAERS Safety Report 24731734 (Version 2)
Quarter: 2025Q2

REPORT INFORMATION
  Report Type: Spontaneous
  Country: US (occurrence: US)
  Receive Date: 20241213
  Receipt Date: 20250531
  Transmission Date: 20250717
  Serious: Yes (Other)
  Sender: STEMLINE THERAPEUTICS
  Company Number: US-STEMLINE THERAPEUTICS B.V.-2024-STML-US006561

PATIENT

DRUGS (3)
  1. ORSERDU [Suspect]
     Active Substance: ELACESTRANT
     Indication: Product used for unknown indication
     Dosage: 258 MG, DAILY (3 TABLETS OF 86 MG)
     Route: 065
     Dates: start: 20240624
  2. HERCEPTIN [Suspect]
     Active Substance: TRASTUZUMAB
     Indication: Product used for unknown indication
     Route: 065
  3. TUKYSA [Suspect]
     Active Substance: TUCATINIB
     Indication: Product used for unknown indication
     Route: 065

REACTIONS (3)
  - Device related infection [Unknown]
  - Hyponatraemia [Unknown]
  - Underdose [Unknown]

NARRATIVE: CASE EVENT DATE: 20240624
